FAERS Safety Report 22810514 (Version 3)
Quarter: 2024Q4

REPORT INFORMATION
  Report Type: Spontaneous
  Country: GB (occurrence: GB)
  Receive Date: 20230810
  Receipt Date: 20241203
  Transmission Date: 20250115
  Serious: Yes (Other)
  Sender: MYLAN
  Company Number: GB-MYLANLABS-2023M1083187

PATIENT
  Sex: Male

DRUGS (3)
  1. CLOZARIL [Suspect]
     Active Substance: CLOZAPINE
     Indication: Schizophrenia
     Dosage: UNK
     Route: 048
     Dates: start: 20230712, end: 20230727
  2. CLOZARIL [Suspect]
     Active Substance: CLOZAPINE
     Dosage: UNK (07-NOV-2024: PROPOSED COMMENCEMENT DATE)
     Route: 048
  3. CLOZARIL [Suspect]
     Active Substance: CLOZAPINE
     Dosage: UNK
     Route: 048
     Dates: start: 20241107

REACTIONS (5)
  - Pulmonary hypertension [Unknown]
  - Myocarditis [Unknown]
  - Sinus tachycardia [Unknown]
  - Back pain [Unknown]
  - Therapy interrupted [Unknown]
